FAERS Safety Report 18065500 (Version 1)
Quarter: 2020Q3

REPORT INFORMATION
  Report Type: Spontaneous
  Country: US (occurrence: US)
  Receive Date: 20200724
  Receipt Date: 20200724
  Transmission Date: 20201103
  Serious: No
  Sender: FDA-Public Use
  Company Number: None

PATIENT
  Age: 49 Year
  Sex: Female
  Weight: 85.95 kg

DRUGS (6)
  1. LUPRON DEPOT [Suspect]
     Active Substance: LEUPROLIDE ACETATE
     Indication: ANAEMIA
     Dosage: ?          OTHER ROUTE:INJECTION?
     Dates: start: 20200422, end: 20200722
  2. LUPRON DEPOT [Suspect]
     Active Substance: LEUPROLIDE ACETATE
     Indication: UTERINE LEIOMYOMA
     Dosage: ?          OTHER ROUTE:INJECTION?
     Dates: start: 20200422, end: 20200722
  3. CALCIUM [Concomitant]
     Active Substance: CALCIUM
  4. VITAMIN C [Concomitant]
     Active Substance: ASCORBIC ACID
  5. IRON [Concomitant]
     Active Substance: IRON
  6. LUPRON DEPOT [Suspect]
     Active Substance: LEUPROLIDE ACETATE
     Indication: MENORRHAGIA
     Dosage: ?          OTHER ROUTE:INJECTION?
     Dates: start: 20200422, end: 20200722

REACTIONS (14)
  - Hyperhidrosis [None]
  - Insomnia [None]
  - Back pain [None]
  - Affect lability [None]
  - Pain in extremity [None]
  - Oedema peripheral [None]
  - Gait disturbance [None]
  - Tenderness [None]
  - Exercise lack of [None]
  - Quality of life decreased [None]
  - Weight increased [None]
  - Hot flush [None]
  - Loss of libido [None]
  - Vaginal infection [None]
